FAERS Safety Report 5974907-8 (Version None)
Quarter: 2008Q4

REPORT INFORMATION
  Report Type: 
  Country: None (occurrence: None)
  Receive Date: 20081202
  Receipt Date: 20081125
  Transmission Date: 20090506
  Serious: Yes (Other)
  Sender: FDA-Public Use
  Company Number: US-PFIZER INC-2008100073

PATIENT
  Sex: Female

DRUGS (1)
  1. SUTENT [Suspect]
     Indication: MALIGNANT MELANOMA
     Dates: start: 20080601, end: 20081101

REACTIONS (3)
  - CARDIAC DISORDER [None]
  - CEREBROVASCULAR ACCIDENT [None]
  - THROMBOSIS [None]
